FAERS Safety Report 10722199 (Version 7)
Quarter: 2015Q2

REPORT INFORMATION
  Report Type: Spontaneous
  Country: BR (occurrence: BR)
  Receive Date: 20150119
  Receipt Date: 20150413
  Transmission Date: 20150821
  Serious: Yes (Hospitalization, Other)
  Sender: FDA-Public Use
  Company Number: BR-PFIZER INC-2015015070

PATIENT
  Age: 64 Year
  Sex: Female
  Weight: 88 kg

DRUGS (16)
  1. HIGROTON [Concomitant]
     Active Substance: CHLORTHALIDONE
     Indication: HYPERTENSION
     Dosage: STRENGTH 25 MG
  2. ATENSINA [Concomitant]
     Active Substance: CLONIDINE
     Indication: HYPERTENSION
     Dosage: STRENGTH 0.200 NO UNIT PROVIDED
  3. APRESOLINE HYDROCHLORIDE [Concomitant]
     Active Substance: HYDRALAZINE HYDROCHLORIDE
     Indication: HYPERTENSION
     Dosage: 3X/DAY
  4. OLMETEC [Suspect]
     Active Substance: OLMESARTAN MEDOXOMIL
     Indication: BLOOD PRESSURE
     Dosage: UNK, 3X/DAY
     Route: 048
  5. ATENSINA [Concomitant]
     Active Substance: CLONIDINE
     Dosage: 3X/DAY
  6. CARVEDILOL. [Concomitant]
     Active Substance: CARVEDILOL
     Dosage: 2X/DAY (EVERY 12 HOURS)
     Dates: start: 2012
  7. ALPHAGAN P [Concomitant]
     Active Substance: BRIMONIDINE TARTRATE
     Indication: RETINAL DISORDER
  8. ALPHAGAN P [Concomitant]
     Active Substance: BRIMONIDINE TARTRATE
     Indication: GLAUCOMA
     Dosage: 2X/DAY
     Dates: start: 2005
  9. MINIPRESS [Suspect]
     Active Substance: PRAZOSIN HYDROCHLORIDE
     Indication: HYPERTENSION
     Dosage: 2 MG, 3X/DAY
     Route: 048
     Dates: start: 2013
  10. AZOPT [Concomitant]
     Active Substance: BRINZOLAMIDE
     Indication: RETINAL DISORDER
  11. ALPHAGAN P [Concomitant]
     Active Substance: BRIMONIDINE TARTRATE
     Indication: CATARACT
  12. OLMETEC [Suspect]
     Active Substance: OLMESARTAN MEDOXOMIL
     Indication: HYPERTENSION
     Dosage: 40 MG, 1X/DAY
     Route: 048
     Dates: start: 2012
  13. MINIPRESS [Suspect]
     Active Substance: PRAZOSIN HYDROCHLORIDE
     Indication: BLOOD PRESSURE
     Dosage: 6 MG (3 CAPSULES OF 2MG), DAILY
     Route: 048
     Dates: start: 2014
  14. CARVEDILOL. [Concomitant]
     Active Substance: CARVEDILOL
     Indication: HYPERTENSION
     Dosage: 2 TABLETS OF STRENGTH 25 MG (50 MG), DAILY
  15. AZOPT [Concomitant]
     Active Substance: BRINZOLAMIDE
     Indication: GLAUCOMA
     Dosage: 2X/DAY
     Dates: start: 2005
  16. AZOPT [Concomitant]
     Active Substance: BRINZOLAMIDE
     Indication: CATARACT

REACTIONS (9)
  - Venous occlusion [Unknown]
  - Vomiting [Recovered/Resolved]
  - Dizziness [Unknown]
  - Hypoglycaemia [Recovered/Resolved]
  - Visual acuity reduced [Unknown]
  - Diabetic eye disease [Not Recovered/Not Resolved]
  - Malaise [Unknown]
  - Bladder disorder [Recovered/Resolved]
  - Blood glucose decreased [Unknown]

NARRATIVE: CASE EVENT DATE: 2014
